FAERS Safety Report 11368275 (Version 1)
Quarter: 2015Q3

REPORT INFORMATION
  Report Type: Spontaneous
  Country: US (occurrence: US)
  Receive Date: 20150811
  Receipt Date: 20150811
  Transmission Date: 20151125
  Serious: No
  Sender: FDA-Public Use
  Company Number: US-ELI_LILLY_AND_COMPANY-US201402001271

PATIENT
  Sex: Male
  Weight: 99.77 kg

DRUGS (2)
  1. AXIRON [Suspect]
     Active Substance: TESTOSTERONE
     Indication: BLOOD TESTOSTERONE DECREASED
     Dosage: 30 MG, QD
     Route: 062
     Dates: start: 20130830, end: 201312
  2. AXIRON [Suspect]
     Active Substance: TESTOSTERONE
     Indication: HYPOGONADISM

REACTIONS (5)
  - Diarrhoea [Recovered/Resolved]
  - Lethargy [Unknown]
  - Mood swings [Recovered/Resolved]
  - Weight increased [Unknown]
  - Alopecia [Recovered/Resolved]
